FAERS Safety Report 9713886 (Version 1)
Quarter: 2013Q4

REPORT INFORMATION
  Report Type: Spontaneous
  Country: US (occurrence: None)
  Receive Date: 20131126
  Receipt Date: 20131126
  Transmission Date: 20140711
  Serious: No
  Sender: FDA-Public Use
  Company Number: None

PATIENT
  Age: 33 Year
  Sex: Female
  Weight: 88.45 kg

DRUGS (2)
  1. HEPARIN [Suspect]
     Indication: ANTICOAGULANT THERAPY
     Dosage: UNDER THE SKIN
     Dates: start: 20131118, end: 20131123
  2. HEPARIN [Suspect]
     Indication: EXPOSURE DURING PREGNANCY
     Dosage: UNDER THE SKIN
     Dates: start: 20131118, end: 20131123

REACTIONS (12)
  - Product quality issue [None]
  - Erythema [None]
  - Skin swelling [None]
  - Skin burning sensation [None]
  - Contusion [None]
  - Pruritus [None]
  - Injection site pain [None]
  - Injection site swelling [None]
  - Injection site erythema [None]
  - Nausea [None]
  - Product substitution issue [None]
  - Condition aggravated [None]
